FAERS Safety Report 5387017-8 (Version None)
Quarter: 2007Q3

REPORT INFORMATION
  Report Type: 
  Country: None (occurrence: None)
  Receive Date: 20070713
  Receipt Date: 20070703
  Transmission Date: 20080115
  Serious: Yes (Death)
  Sender: FDA-Public Use
  Company Number: JP-PFIZER INC-2007056739

PATIENT
  Age: 70 Year
  Sex: Female

DRUGS (4)
  1. IRINOTECAN HCL [Suspect]
     Indication: DRUG USE FOR UNKNOWN INDICATION
  2. IRINOTECAN HCL [Suspect]
  3. CISPLATIN [Suspect]
     Indication: DRUG USE FOR UNKNOWN INDICATION
  4. CISPLATIN [Suspect]

REACTIONS (1)
  - ALTERED STATE OF CONSCIOUSNESS [None]
